FAERS Safety Report 14453388 (Version 2)
Quarter: 2018Q3

REPORT INFORMATION
  Report Type: Spontaneous
  Country: DE (occurrence: DE)
  Receive Date: 20180129
  Receipt Date: 20180910
  Transmission Date: 20181010
  Serious: Yes (Hospitalization)
  Sender: FDA-Public Use
  Company Number: DE-SA-2018SA017706

PATIENT
  Age: 74 Year
  Sex: Male
  Weight: 131.5 kg

DRUGS (8)
  1. CANAKINUMAB. [Suspect]
     Active Substance: CANAKINUMAB
     Dosage: UNK
  2. MULTAQ [Suspect]
     Active Substance: DRONEDARONE
     Indication: ATRIAL FIBRILLATION
     Dosage: 400 MG,UNK
     Route: 065
     Dates: start: 19950725, end: 20171101
  3. ELIQUIS [Suspect]
     Active Substance: APIXABAN
     Indication: ATRIAL FIBRILLATION
     Dosage: 5 MG,UNK
     Route: 065
     Dates: start: 20130701
  4. ACETYLSALICYLIC ACID [Suspect]
     Active Substance: ASPIRIN
     Indication: CORONARY ARTERY DISEASE
     Dosage: 100 MG,UNK
     Route: 065
     Dates: start: 20141123, end: 20171004
  5. CANAKINUMAB. [Suspect]
     Active Substance: CANAKINUMAB
     Indication: CARDIOVASCULAR EVENT PROPHYLAXIS
     Dosage: 50 MG,UNK
     Route: 058
     Dates: start: 20140128, end: 20170516
  6. BISOPROLOL [Concomitant]
     Active Substance: BISOPROLOL
     Indication: HYPERTENSION
     Dosage: 5 MG,UNK
     Route: 065
     Dates: start: 20141123
  7. TORASEMID [Concomitant]
     Active Substance: TORSEMIDE
     Indication: CARDIAC FAILURE
     Dosage: 20 MG,UNK
     Route: 065
     Dates: start: 20141209
  8. LISINOPRIL. [Concomitant]
     Active Substance: LISINOPRIL
     Indication: CORONARY ARTERY DISEASE
     Dosage: 10 MG,UNK
     Route: 065
     Dates: start: 20140116

REACTIONS (3)
  - Macular oedema [Recovered/Resolved with Sequelae]
  - Retinal degeneration [Recovered/Resolved with Sequelae]
  - Eye haemorrhage [Recovering/Resolving]

NARRATIVE: CASE EVENT DATE: 20171024
